FAERS Safety Report 13590833 (Version 1)
Quarter: 2017Q2

REPORT INFORMATION
  Report Type: Spontaneous
  Country: US (occurrence: US)
  Receive Date: 20170530
  Receipt Date: 20170530
  Transmission Date: 20170830
  Serious: No
  Sender: FDA-Public Use
  Company Number: US-BRECKENRIDGE PHARMACEUTICAL, INC.-2021340

PATIENT
  Age: 54 Year
  Sex: Female

DRUGS (3)
  1. ESTRADIOL AND NORETHINDRONE ACETATE [Suspect]
     Active Substance: ESTRADIOL\NORETHINDRONE ACETATE
     Indication: HORMONE REPLACEMENT THERAPY
     Route: 048
     Dates: start: 20170520
  2. MELOXICAM. [Concomitant]
     Active Substance: MELOXICAM
     Route: 048
  3. ZOLPIDEM TARTRATE. [Concomitant]
     Active Substance: ZOLPIDEM TARTRATE
     Route: 048

REACTIONS (1)
  - Drug hypersensitivity [Not Recovered/Not Resolved]
